FAERS Safety Report 7661276 (Version 2)
Quarter: 2013Q4

REPORT INFORMATION
  Report Type: Spontaneous
  Country: US (occurrence: US)
  Receive Date: 20101109
  Receipt Date: 20131031
  Transmission Date: 20140711
  Serious: Yes (Other)
  Sender: FDA-Public Use
  Company Number: US-BAYER-201039783NA

PATIENT
  Age: 32 Year
  Sex: Female

DRUGS (2)
  1. YAZ [Suspect]
     Dosage: UNK
     Dates: start: 2007, end: 20080615
  2. YASMIN [Suspect]

REACTIONS (3)
  - Cholelithiasis [None]
  - Cholecystitis chronic [None]
  - Abdominal pain [None]
